FAERS Safety Report 9486128 (Version 1)
Quarter: 2013Q3

REPORT INFORMATION
  Report Type: Spontaneous
  Country: US (occurrence: None)
  Receive Date: 20130827
  Receipt Date: 20130827
  Transmission Date: 20140515
  Serious: Yes (Life-Threatening)
  Sender: FDA-Public Use
  Company Number: None

PATIENT
  Age: 64 Year
  Sex: Male
  Weight: 108.86 kg

DRUGS (1)
  1. DEPOMEDROL [Suspect]
     Dosage: 80 MG 2 1 IN EACH KNEE EVERY 90 DAY INJECTION
     Dates: start: 201112, end: 20130423

REACTIONS (3)
  - Infection [None]
  - Injection site reaction [None]
  - No therapeutic response [None]
